FAERS Safety Report 7872510 (Version 2)
Quarter: 2023Q1

REPORT INFORMATION
  Report Type: Spontaneous
  Country: IT (occurrence: IT)
  Receive Date: 20110325
  Receipt Date: 20230306
  Transmission Date: 20230418
  Serious: Yes (Hospitalization, Other)
  Sender: FDA-Public Use
  Company Number: PHHY2011IT20095

PATIENT
  Age: 37 Year
  Sex: Female

DRUGS (14)
  1. PREDNISONE [Suspect]
     Active Substance: PREDNISONE
     Indication: Lung transplant
     Dosage: 5 MG, QD
     Route: 048
  2. PREDNISONE [Suspect]
     Active Substance: PREDNISONE
     Indication: Immunosuppression
     Dosage: 20 MG, QD
     Route: 048
  3. PREDNISONE [Suspect]
     Active Substance: PREDNISONE
     Dosage: UNK
     Route: 048
  4. AZATHIOPRINE [Suspect]
     Active Substance: AZATHIOPRINE
     Indication: Lung transplant
     Dosage: 50 MG, QD
     Route: 048
  5. AZATHIOPRINE [Suspect]
     Active Substance: AZATHIOPRINE
     Indication: Immunosuppression
  6. TACROLIMUS [Suspect]
     Active Substance: TACROLIMUS
     Indication: Lung transplant
     Dosage: UNK
     Route: 048
  7. TACROLIMUS [Suspect]
     Active Substance: TACROLIMUS
     Indication: Immunosuppression
     Dosage: 0.5 MG, BID
     Route: 048
  8. TACROLIMUS [Suspect]
     Active Substance: TACROLIMUS
     Dosage: 2 MG, BID
     Route: 048
  9. METHYLPREDNISOLONE [Suspect]
     Active Substance: METHYLPREDNISOLONE
     Indication: Lung transplant
     Dosage: 250 MG, QD
     Route: 042
  10. METHYLPREDNISOLONE [Suspect]
     Active Substance: METHYLPREDNISOLONE
     Indication: Immunosuppression
     Dosage: 100 MG, QD
     Route: 042
  11. METHYLPREDNISOLONE [Suspect]
     Active Substance: METHYLPREDNISOLONE
     Dosage: 50 MG, QD
     Route: 042
  12. METHYLPREDNISOLONE [Suspect]
     Active Substance: METHYLPREDNISOLONE
     Dosage: 25 MG, QD
     Route: 042
  13. METHYLPREDNISOLONE [Suspect]
     Active Substance: METHYLPREDNISOLONE
     Dosage: 15 MG, QD
     Route: 042
  14. LENOGRASTIM [Concomitant]
     Active Substance: LENOGRASTIM
     Indication: Bone marrow failure
     Dosage: QD, 150 MICROGRAM PER M2
     Route: 065

REACTIONS (5)
  - Clostridium difficile colitis [Recovered/Resolved]
  - Bronchiolitis obliterans syndrome [Recovered/Resolved]
  - Leukopenia [Recovered/Resolved]
  - Pancytopenia [Recovered/Resolved]
  - Product use in unapproved indication [Unknown]

NARRATIVE: CASE EVENT DATE: 20080301
